FAERS Safety Report 10516305 (Version 3)
Quarter: 2014Q4

REPORT INFORMATION
  Report Type: Other
  Country: IT (occurrence: IT)
  Receive Date: 20141014
  Receipt Date: 20141125
  Transmission Date: 20150528
  Serious: Yes (Hospitalization)
  Sender: FDA-Public Use
  Company Number: IT-TAKEDA-2014TEU008866

PATIENT
  Age: 79 Year
  Sex: Female

DRUGS (10)
  1. LANSOX [Suspect]
     Active Substance: LANSOPRAZOLE
     Indication: GASTRITIS
     Dosage: 1 DF, QD
     Route: 048
  2. BISOPROLOL HEMIFUMARATE [Suspect]
     Active Substance: BISOPROLOL FUMARATE
     Indication: ATRIAL FIBRILLATION
     Dosage: 2.5 MG, QD
     Route: 048
  3. TRIATEC                            /00885601/ [Interacting]
     Active Substance: RAMIPRIL
     Indication: HYPERTENSION
     Dosage: 2.5 MG, QD
     Route: 048
  4. LASIX [Suspect]
     Active Substance: FUROSEMIDE
     Indication: CARDIAC DISORDER
     Dosage: 1 DF, QD
     Route: 048
  5. LANOXIN [Suspect]
     Active Substance: DIGOXIN
     Indication: ATRIAL FIBRILLATION
     Dosage: 0.5 MG/2ML
     Route: 042
     Dates: start: 20141001, end: 20141001
  6. DIAMICRON [Suspect]
     Active Substance: GLICLAZIDE
     Indication: DIABETES MELLITUS
     Dosage: 1 DF, QD
     Route: 048
     Dates: start: 201404
  7. LANOXIN [Interacting]
     Active Substance: DIGOXIN
     Indication: CARDIOMYOPATHY
     Dosage: 1 DF, QD
     Route: 048
  8. SEREUPIN [Suspect]
     Active Substance: PAROXETINE HYDROCHLORIDE
     Indication: ADJUSTMENT DISORDER WITH DEPRESSED MOOD
     Dosage: 1 DF, QD
     Route: 048
  9. KEPPRA [Interacting]
     Active Substance: LEVETIRACETAM
     Indication: POST-TRAUMATIC EPILEPSY
     Dosage: 2 DF, QD
     Route: 048
  10. TRITTICO [Suspect]
     Active Substance: TRAZODONE HYDROCHLORIDE
     Indication: COGNITIVE DISORDER
     Dosage: 15 GTT, QD
     Route: 048

REACTIONS (7)
  - Diabetic metabolic decompensation [Recovered/Resolved]
  - Medication error [Unknown]
  - Malaise [Recovered/Resolved]
  - Cardioactive drug level increased [Recovered/Resolved]
  - Fatigue [Recovered/Resolved]
  - Atrial fibrillation [Recovered/Resolved]
  - Bradyphrenia [Recovered/Resolved]

NARRATIVE: CASE EVENT DATE: 20141001
